FAERS Safety Report 12072997 (Version 1)
Quarter: 2016Q1

REPORT INFORMATION
  Report Type: Spontaneous
  Country: CH (occurrence: CH)
  Receive Date: 20160212
  Receipt Date: 20160212
  Transmission Date: 20160526
  Serious: Yes (Other)
  Sender: FDA-Public Use
  Company Number: CH-GLAXOSMITHKLINE-CH2016GSK018787

PATIENT
  Age: 40 Year
  Sex: Male

DRUGS (2)
  1. ACICLOVIR [Suspect]
     Active Substance: ACYCLOVIR
     Indication: OPHTHALMIC HERPES ZOSTER
  2. ACICLOVIR [Suspect]
     Active Substance: ACYCLOVIR
     Indication: DACRYOADENITIS ACQUIRED
     Dosage: UNK (5 TIMES A DAY)
     Route: 061

REACTIONS (1)
  - Punctate keratitis [Unknown]
